FAERS Safety Report 9311589 (Version 1)
Quarter: 2013Q2

REPORT INFORMATION
  Report Type: Spontaneous
  Country: GB (occurrence: GB)
  Receive Date: 20130528
  Receipt Date: 20130528
  Transmission Date: 20140414
  Serious: Yes (Other)
  Sender: FDA-Public Use
  Company Number: GB-UCBSA-086656

PATIENT
  Sex: 0

DRUGS (1)
  1. VIMPAT [Suspect]

REACTIONS (3)
  - Convulsion [Unknown]
  - Brain injury [Unknown]
  - Refusal of treatment by patient [Unknown]
